FAERS Safety Report 8376095-X (Version None)
Quarter: 2012Q2

REPORT INFORMATION
  Report Type: 
  Country: None (occurrence: None)
  Receive Date: 20120522
  Receipt Date: 20120517
  Transmission Date: 20120825
  Serious: Yes (Hospitalization, Other)
  Sender: FDA-Public Use
  Company Number: PHHY2009JP15132

PATIENT
  Sex: Male

DRUGS (16)
  1. DECADRON [Concomitant]
     Indication: METASTASES TO BONE
     Dosage: 1 MG, UNK
     Route: 048
     Dates: start: 20070525, end: 20090415
  2. NORVASC [Concomitant]
     Indication: HYPERTENSION
     Dosage: 10 MG, UNK
     Route: 048
  3. CEFAZOLIN [Concomitant]
     Dosage: 2 G, UNK
     Route: 041
  4. MUCODYNE [Concomitant]
     Indication: PRODUCTIVE COUGH
     Dosage: 500 MG, UNK
     Route: 048
  5. LOXONIN [Concomitant]
     Dosage: 180 MG, UNK
     Route: 048
  6. MAGMITT [Concomitant]
     Indication: CONSTIPATION
     Dosage: 990 MG, UNK
     Route: 048
     Dates: start: 20090421
  7. SOLU-CORTEF [Concomitant]
     Indication: PROSTATE CANCER
     Dosage: 200 MG, UNK
     Dates: start: 20060925
  8. SOLU-CORTEF [Concomitant]
     Indication: METASTASES TO BONE
  9. FENTANYL-100 [Concomitant]
     Indication: BONE PAIN
  10. ENALAPRIL MALEATE [Concomitant]
     Indication: HYPERTENSION
     Dosage: 5 MG, UNK
     Route: 048
  11. PURSENNID [Concomitant]
     Indication: CONSTIPATION
     Dosage: 12 MG, UNK
     Route: 048
     Dates: start: 20090421
  12. ZANTAC [Concomitant]
     Indication: PROPHYLAXIS AGAINST GASTROINTESTINAL ULCER
     Dosage: 150 MG, UNK
     Route: 048
  13. IRRIGATING SOLUTIONS [Concomitant]
  14. METOPROLOL TARTRATE [Concomitant]
     Indication: HYPERTENSION
     Dosage: 80 MG, UNK
     Route: 048
  15. ZOMETA [Suspect]
     Indication: METASTASES TO BONE
     Dosage: 4 MG, QMO
     Route: 042
     Dates: start: 20060925, end: 20090306
  16. DUROTEP JANSSEN [Concomitant]
     Indication: BONE PAIN
     Dates: start: 20070401

REACTIONS (22)
  - LOCAL SWELLING [None]
  - SWELLING FACE [None]
  - LYMPHOCYTE COUNT DECREASED [None]
  - BLOOD CREATININE INCREASED [None]
  - SWELLING [None]
  - ORAL MUCOSAL ERYTHEMA [None]
  - PRIMARY SEQUESTRUM [None]
  - WHITE BLOOD CELL COUNT INCREASED [None]
  - BASOPHIL COUNT INCREASED [None]
  - BLOOD UREA INCREASED [None]
  - BONE DISORDER [None]
  - OSTEONECROSIS OF JAW [None]
  - NEUTROPHIL COUNT INCREASED [None]
  - MONOCYTE COUNT INCREASED [None]
  - PURULENT DISCHARGE [None]
  - MOUTH ULCERATION [None]
  - TOOTH INFECTION [None]
  - BACTERIAL INFECTION [None]
  - HAEMOGLOBIN DECREASED [None]
  - SUBCUTANEOUS ABSCESS [None]
  - BLOOD GLUCOSE INCREASED [None]
  - TRISMUS [None]
